FAERS Safety Report 25776220 (Version 1)
Quarter: 2025Q3

REPORT INFORMATION
  Report Type: Spontaneous
  Country: US (occurrence: US)
  Receive Date: 20250909
  Receipt Date: 20250909
  Transmission Date: 20251020
  Serious: No
  Sender: DOMPE FARMACEUTICI
  Company Number: US-FARMAPROD-202502-0493

PATIENT
  Sex: Female

DRUGS (9)
  1. OXERVATE [Suspect]
     Active Substance: CENEGERMIN-BKBJ
     Indication: Keratitis
     Route: 047
     Dates: start: 20241219, end: 20250218
  2. SYSTANE (HYPROMELLOSE 2910 (4000 MPA.S)) [Concomitant]
     Active Substance: HYPROMELLOSE 2910 (4000 MPA.S)
  3. ALREX [Concomitant]
     Active Substance: LOTEPREDNOL ETABONATE
  4. PREDNISOLONE FORTE [Concomitant]
  5. HYDROXYCHLOROQUINE SULFATE [Concomitant]
     Active Substance: HYDROXYCHLOROQUINE SULFATE
  6. RESTASIS [Concomitant]
     Active Substance: CYCLOSPORINE
  7. PLAQUENIL [Concomitant]
     Active Substance: HYDROXYCHLOROQUINE SULFATE
  8. PREDNISOLONE [Concomitant]
     Active Substance: PREDNISOLONE
  9. RETAINE [Concomitant]
     Active Substance: HYPROMELLOSE 2910 (4000 MPA.S)

REACTIONS (2)
  - Condition aggravated [Recovered/Resolved]
  - Off label use [Unknown]
